FAERS Safety Report 17216185 (Version 6)
Quarter: 2020Q2

REPORT INFORMATION
  Report Type: Report from Study
  Country: GB (occurrence: GB)
  Receive Date: 20191230
  Receipt Date: 20200413
  Transmission Date: 20200713
  Serious: Yes (Hospitalization)
  Sender: FDA-Public Use
  Company Number: GB-ACTELION-A-US2019-199938

PATIENT
  Age: 58 Year
  Sex: Female

DRUGS (2)
  1. VOLIBRIS [Concomitant]
     Active Substance: AMBRISENTAN
  2. VENTAVIS [Suspect]
     Active Substance: ILOPROST
     Indication: PULMONARY ARTERIAL HYPERTENSION
     Dosage: 2.5 UG, 7 ID
     Route: 055
     Dates: start: 2016

REACTIONS (8)
  - Device malfunction [Recovered/Resolved]
  - Fatigue [Unknown]
  - Drug delivery system malfunction [Unknown]
  - Drug dose omission by device [Unknown]
  - Device use error [Unknown]
  - Intentional dose omission [Unknown]
  - Medical procedure [Unknown]
  - Product dose omission [Unknown]

NARRATIVE: CASE EVENT DATE: 201912
